FAERS Safety Report 15370765 (Version 1)
Quarter: 2018Q4

REPORT INFORMATION
  Report Type: Spontaneous
  Country: US (occurrence: US)
  Receive Date: 20180911
  Receipt Date: 20180911
  Transmission Date: 20190204
  Serious: No
  Sender: FDA-Public Use
  Company Number: US-MILLICENT HOLDINGS LTD.-MILL20180493

PATIENT
  Age: 70 Year
  Sex: Female

DRUGS (1)
  1. FEMRING [Suspect]
     Active Substance: ESTRADIOL ACETATE
     Indication: MENOPAUSAL SYMPTOMS
     Dosage: 2 FEMRINGS INSERTED, 0.05 MG/DAY
     Route: 067
     Dates: start: 20180905

REACTIONS (3)
  - Product prescribing error [None]
  - Administration site pain [Recovered/Resolved]
  - Product administration error [None]

NARRATIVE: CASE EVENT DATE: 20180905
